FAERS Safety Report 11315742 (Version 2)
Quarter: 2015Q3

REPORT INFORMATION
  Report Type: Report from Study
  Country: US (occurrence: US)
  Receive Date: 20150728
  Receipt Date: 20150905
  Transmission Date: 20151125
  Serious: No
  Sender: FDA-Public Use
  Company Number: PHEH2015US013745

PATIENT
  Sex: Male

DRUGS (1)
  1. GILENYA [Suspect]
     Active Substance: FINGOLIMOD HYDROCHLORIDE
     Indication: MULTIPLE SCLEROSIS
     Dosage: 0.5 MG, QD
     Route: 048
     Dates: start: 20150519

REACTIONS (9)
  - Feeling abnormal [Unknown]
  - Chills [Unknown]
  - Drug ineffective [Unknown]
  - Fatigue [Unknown]
  - Nervousness [Unknown]
  - Abdominal discomfort [Unknown]
  - Constipation [Unknown]
  - Flatulence [Unknown]
  - Muscular weakness [Unknown]
